FAERS Safety Report 7353117-6 (Version None)
Quarter: 2011Q1

REPORT INFORMATION
  Report Type: 
  Country: None (occurrence: None)
  Receive Date: 20110315
  Receipt Date: 20110301
  Transmission Date: 20110831
  Serious: Yes (Hospitalization)
  Sender: FDA-Public Use
  Company Number: US-ELI_LILLY_AND_COMPANY-US201102006292

PATIENT
  Sex: Male
  Weight: 108.84 kg

DRUGS (6)
  1. DIOVAN [Concomitant]
     Dosage: 80 MG, DAILY (1/D)
  2. EFFIENT [Suspect]
     Dosage: 10 MG, DAILY (1/D)
     Dates: start: 20100922
  3. METOPROLOL [Concomitant]
     Dosage: 100 MG, DAILY (1/D)
  4. PEPCID [Concomitant]
     Dosage: 20 MG, 2/D
  5. ASPIRIN [Concomitant]
     Dosage: 325 MG, DAILY (1/D)
  6. SIMVASTATIN [Concomitant]
     Dosage: 40 MG, DAILY (1/D)

REACTIONS (2)
  - NON-CARDIAC CHEST PAIN [None]
  - CHEST PAIN [None]
